FAERS Safety Report 23832068 (Version 1)
Quarter: 2024Q2

REPORT INFORMATION
  Report Type: Spontaneous
  Country: US (occurrence: US)
  Receive Date: 20240508
  Receipt Date: 20240508
  Transmission Date: 20240716
  Serious: No
  Sender: FDA-Public Use
  Company Number: US-TEVA-VS-3190236

PATIENT
  Age: 51 Year
  Sex: Female

DRUGS (1)
  1. ESTRADIOL [Suspect]
     Active Substance: ESTRADIOL
     Indication: Product used for unknown indication
     Dosage: 10 MCG
     Route: 065

REACTIONS (12)
  - Heavy menstrual bleeding [Unknown]
  - Adnexa uteri pain [Unknown]
  - Uterine spasm [Unknown]
  - Confusional state [Unknown]
  - Abdominal discomfort [Unknown]
  - Lip swelling [Unknown]
  - Inappropriate schedule of product administration [Unknown]
  - Cyst [Unknown]
  - Dysmenorrhoea [Unknown]
  - Breast tenderness [Unknown]
  - Discomfort [Unknown]
  - Abdominal distension [Unknown]
